FAERS Safety Report 15412883 (Version 1)
Quarter: 2018Q3

REPORT INFORMATION
  Report Type: Other
  Country: ES (occurrence: ES)
  Receive Date: 20180921
  Receipt Date: 20180921
  Transmission Date: 20181010
  Serious: Yes (Death, Hospitalization, Other)
  Sender: FDA-Public Use
  Company Number: ES-APOTEX-2018AP021011

PATIENT
  Age: 72 Year
  Sex: Female

DRUGS (3)
  1. ALPRAZOLAM. [Suspect]
     Active Substance: ALPRAZOLAM
     Indication: PRODUCT USED FOR UNKNOWN INDICATION
     Dosage: 1 MG, QD, 1/2?1/2?1 || DOSIS UNIDAD FRECUENCIA: 1 MG?MILIGRAMOS || UNIDAD DE FRECUENCIA: 1 D?A
     Route: 048
     Dates: start: 201404
  2. BRINTELLIX [Interacting]
     Active Substance: VORTIOXETINE HYDROBROMIDE
     Indication: DEPRESSION
     Dosage: 5 MG, QD, 1 VEZ AL D?A || DOSIS UNIDAD FRECUENCIA: 5 MG?MILIGRAMOS || DOSIS POR TOMA: 5 MG?MILIGRAMO
     Route: 048
     Dates: start: 20160310, end: 20160402
  3. LUDIOMIL [Interacting]
     Active Substance: MAPROTILINE HYDROCHLORIDE
     Indication: DEPRESSION
     Dosage: 18.75 MG, BID, (1/2?0?1/2) || DOSIS UNIDAD FRECUENCIA: 37.5 MG?MILIGRAMOS || DOSIS PO
     Route: 048
     Dates: start: 201404

REACTIONS (4)
  - Polydipsia [Fatal]
  - Aspiration [Fatal]
  - Cerebrovascular accident [Fatal]
  - Hyponatraemia [Fatal]

NARRATIVE: CASE EVENT DATE: 201604
